FAERS Safety Report 5661864-7 (Version None)
Quarter: 2008Q1

REPORT INFORMATION
  Report Type: 
  Country: None (occurrence: None)
  Receive Date: 20080305
  Receipt Date: 20080222
  Transmission Date: 20080703
  Serious: Yes (Hospitalization)
  Sender: FDA-Public Use
  Company Number: WAES 0802USA03563

PATIENT
  Age: 67 Year
  Sex: Female
  Weight: 100.6985 kg

DRUGS (13)
  1. ZOCOR [Suspect]
     Indication: DYSLIPIDAEMIA
     Dosage: 20 MG/DAILY
     Route: 048
     Dates: start: 20071204, end: 20080102
  2. ZOCOR [Suspect]
     Indication: HYPERCHOLESTEROLAEMIA
     Dosage: 20 MG/DAILY
     Route: 048
     Dates: start: 20071204, end: 20080102
  3. ZOCOR [Suspect]
     Indication: DYSLIPIDAEMIA
     Dosage: 20 MG/DAILY
     Route: 048
     Dates: start: 20080103, end: 20080115
  4. ZOCOR [Suspect]
     Indication: HYPERCHOLESTEROLAEMIA
     Dosage: 20 MG/DAILY
     Route: 048
     Dates: start: 20080103, end: 20080115
  5. ZOCOR [Suspect]
     Indication: DYSLIPIDAEMIA
     Dosage: 20 MG/DAILY
     Route: 048
     Dates: start: 20080116, end: 20080212
  6. ZOCOR [Suspect]
     Indication: HYPERCHOLESTEROLAEMIA
     Dosage: 20 MG/DAILY
     Route: 048
     Dates: start: 20080116, end: 20080212
  7. ZOCOR [Suspect]
     Indication: DYSLIPIDAEMIA
     Dosage: 20 MG/DAILY
     Route: 048
     Dates: start: 20080213
  8. ZOCOR [Suspect]
     Indication: HYPERCHOLESTEROLAEMIA
     Dosage: 20 MG/DAILY
     Route: 048
     Dates: start: 20080213
  9. ZOCOR [Suspect]
     Indication: DYSLIPIDAEMIA
     Dosage: 20 MG/DAILY
     Route: 048
     Dates: start: 20080213
  10. ZOCOR [Suspect]
     Indication: HYPERCHOLESTEROLAEMIA
     Dosage: 20 MG/DAILY
     Route: 048
     Dates: start: 20080213
  11. MK-0524A [Suspect]
  12. MK-0733 [Suspect]
  13. PLACEBO [Suspect]

REACTIONS (1)
  - BRONCHOSPASM [None]
